FAERS Safety Report 7012916-0 (Version None)
Quarter: 2010Q3

REPORT INFORMATION
  Report Type: 
  Country: None (occurrence: None)
  Receive Date: 20100924
  Receipt Date: 20100913
  Transmission Date: 20110219
  Serious: Yes (Hospitalization)
  Sender: FDA-Public Use
  Company Number: JP-PFIZER INC-2010115504

PATIENT

DRUGS (2)
  1. ZOLOFT [Suspect]
     Indication: PANIC DISORDER
     Dosage: 50 MG/DAY
     Route: 064
  2. WYPAX [Suspect]
     Indication: PANIC DISORDER
     Dosage: 1 MG
     Route: 064

REACTIONS (7)
  - COMA NEONATAL [None]
  - DRUG EXPOSURE DURING PREGNANCY [None]
  - HYPERTONIA NEONATAL [None]
  - MECHANICAL VENTILATION [None]
  - SEPSIS NEONATAL [None]
  - SOMNOLENCE NEONATAL [None]
  - TREMOR NEONATAL [None]
